FAERS Safety Report 17134734 (Version 1)
Quarter: 2019Q4

REPORT INFORMATION
  Report Type: Report from Study
  Country: GB (occurrence: GB)
  Receive Date: 20191210
  Receipt Date: 20191210
  Transmission Date: 20200122
  Serious: Yes (Other)
  Sender: FDA-Public Use
  Company Number: PHHY2015GB083567

PATIENT
  Age: 43 Year
  Sex: Female

DRUGS (1)
  1. GILENYA [Suspect]
     Active Substance: FINGOLIMOD HYDROCHLORIDE
     Indication: MULTIPLE SCLEROSIS
     Dosage: UNK, QD
     Route: 048
     Dates: start: 20130730

REACTIONS (24)
  - Faecaloma [Unknown]
  - Basophil count decreased [Unknown]
  - Coital bleeding [Unknown]
  - Orthostatic hypotension [Unknown]
  - Cough [Unknown]
  - Wheezing [Unknown]
  - Arthralgia [Unknown]
  - Constipation [Unknown]
  - Lymphocyte count decreased [Unknown]
  - Vaginal haemorrhage [Recovered/Resolved]
  - Pharyngitis [Unknown]
  - Ligament rupture [Unknown]
  - White blood cell count decreased [Unknown]
  - Pain in extremity [Unknown]
  - Eye pain [Unknown]
  - Bicuspid aortic valve [Unknown]
  - Fall [Unknown]
  - Optic atrophy [Not Recovered/Not Resolved]
  - Breast discomfort [Unknown]
  - Cardiac murmur [Unknown]
  - Asthma [Unknown]
  - Eosinophil count increased [Unknown]
  - Fibrous histiocytoma [Recovered/Resolved]
  - Dyspnoea [Unknown]

NARRATIVE: CASE EVENT DATE: 20131108
